FAERS Safety Report 7535209-1 (Version None)
Quarter: 2011Q2

REPORT INFORMATION
  Report Type: 
  Country: None (occurrence: None)
  Receive Date: 20110609
  Receipt Date: 20071119
  Transmission Date: 20111010
  Serious: Yes (Death, Hospitalization)
  Sender: FDA-Public Use
  Company Number: PHMT2007CA02168

PATIENT
  Sex: Female
  Weight: 52 kg

DRUGS (1)
  1. ZOMETA [Suspect]
     Indication: LUNG NEOPLASM MALIGNANT
     Dosage: 4 MG, EVERY 4 WEEKS
     Route: 042
     Dates: start: 20050303, end: 20070926

REACTIONS (1)
  - LIFE EXPECTANCY SHORTENED [None]
